FAERS Safety Report 18479356 (Version 2)
Quarter: 2023Q2

REPORT INFORMATION
  Report Type: Spontaneous
  Country: US (occurrence: US)
  Receive Date: 20201109
  Receipt Date: 20230516
  Transmission Date: 20230722
  Serious: No
  Sender: FDA-Public Use
  Company Number: US-SANOFI-00349820

PATIENT
  Age: 43 Year
  Sex: Male

DRUGS (2)
  1. CEREZYME [Suspect]
     Active Substance: IMIGLUCERASE
     Indication: Gaucher^s disease
     Dosage: 7 VIALS FOR THE FIRST WEEK
  2. CEREZYME [Suspect]
     Active Substance: IMIGLUCERASE
     Dosage: 6 VIALS THE NEXT WEEK

REACTIONS (1)
  - Therapy cessation [Unknown]
